FAERS Safety Report 5938400-0 (Version None)
Quarter: 2008Q4

REPORT INFORMATION
  Report Type: 
  Country: None (occurrence: None)
  Receive Date: 20081103
  Receipt Date: 20081020
  Transmission Date: 20090506
  Serious: Yes (Hospitalization, Other)
  Sender: FDA-Public Use
  Company Number: US-ROCHE-485889

PATIENT
  Sex: Female
  Weight: 71.7 kg

DRUGS (12)
  1. ACCUTANE [Suspect]
     Route: 048
     Dates: start: 19941111, end: 19950120
  2. ACCUTANE [Suspect]
     Route: 048
     Dates: start: 19981001, end: 19990101
  3. ACCUTANE [Suspect]
     Route: 048
     Dates: start: 20000701, end: 20001001
  4. ORTHO TRI-CYCLEN [Concomitant]
  5. ORTHO-NOVUM 7/7/7-21 [Concomitant]
     Dates: start: 19930101, end: 19980101
  6. ADVIL [Concomitant]
     Dates: start: 19960101
  7. ALEVE [Concomitant]
  8. MULTI-VITAMIN [Concomitant]
     Dosage: DOSAGE REPROTED AS QD.
     Dates: start: 19980101
  9. ACETAMINOPHEN [Concomitant]
     Dosage: REPORTED AS ACETAMINOPHEN (TYLENOL).
     Dates: start: 19960101
  10. AQUAPHOR [Concomitant]
  11. VITAMIN B [Concomitant]
     Dates: start: 19981101
  12. ASCORBIC ACID [Concomitant]
     Dates: start: 19981101

REACTIONS (12)
  - ANAEMIA [None]
  - ANXIETY [None]
  - ARTHRALGIA [None]
  - COLITIS [None]
  - COLITIS ULCERATIVE [None]
  - INFLAMMATORY BOWEL DISEASE [None]
  - INSOMNIA [None]
  - OEDEMA [None]
  - PERINEAL LACERATION [None]
  - POSTPARTUM HAEMORRHAGE [None]
  - PREGNANCY INDUCED HYPERTENSION [None]
  - RECTAL HAEMORRHAGE [None]
